FAERS Safety Report 15941418 (Version 2)
Quarter: 2019Q1

REPORT INFORMATION
  Report Type: Spontaneous
  Country: US (occurrence: US)
  Receive Date: 20190208
  Receipt Date: 20190227
  Transmission Date: 20190417
  Serious: Yes (Other)
  Sender: FDA-Public Use
  Company Number: US-ASTRAZENECA-2019SE10839

PATIENT
  Age: 23781 Day
  Sex: Male

DRUGS (15)
  1. NEXIUM [Suspect]
     Active Substance: ESOMEPRAZOLE MAGNESIUM
     Route: 048
     Dates: start: 2010, end: 2018
  2. NEXIUM [Suspect]
     Active Substance: ESOMEPRAZOLE MAGNESIUM
     Route: 048
     Dates: start: 20070715
  3. DEXILANT [Suspect]
     Active Substance: DEXLANSOPRAZOLE
     Route: 065
     Dates: start: 2010, end: 2018
  4. PRILOSEC [Suspect]
     Active Substance: OMEPRAZOLE MAGNESIUM
     Route: 048
     Dates: start: 20070715
  5. ALBUTEROL. [Concomitant]
     Active Substance: ALBUTEROL
  6. PRILOSEC [Suspect]
     Active Substance: OMEPRAZOLE MAGNESIUM
     Route: 048
     Dates: start: 2010, end: 2018
  7. CLONIDINE. [Concomitant]
     Active Substance: CLONIDINE
  8. LISINOPRIL. [Concomitant]
     Active Substance: LISINOPRIL
  9. PRAVASTATIN. [Concomitant]
     Active Substance: PRAVASTATIN
  10. METOPROLOL. [Concomitant]
     Active Substance: METOPROLOL
  11. DEXILANT [Suspect]
     Active Substance: DEXLANSOPRAZOLE
     Route: 065
     Dates: start: 20070715
  12. NORVASC [Concomitant]
     Active Substance: AMLODIPINE BESYLATE
  13. METOPROLOL. [Concomitant]
     Active Substance: METOPROLOL
  14. ASPIRIN. [Concomitant]
     Active Substance: ASPIRIN
  15. NIASPAN [Concomitant]
     Active Substance: NIACIN

REACTIONS (8)
  - Rebound acid hypersecretion [Unknown]
  - Nephrogenic anaemia [Unknown]
  - Acute kidney injury [Unknown]
  - Chronic kidney disease [Unknown]
  - Tubulointerstitial nephritis [Unknown]
  - Renal failure [Unknown]
  - Chronic kidney disease-mineral and bone disorder [Unknown]
  - Renal injury [Unknown]

NARRATIVE: CASE EVENT DATE: 20100719
